FAERS Safety Report 8501967-2 (Version None)
Quarter: 2012Q2

REPORT INFORMATION
  Report Type: 
  Country: None (occurrence: None)
  Receive Date: 20120405
  Receipt Date: 20110412
  Transmission Date: 20120825
  Serious: Yes (Other)
  Sender: FDA-Public Use
  Company Number: PHHY2011US23874

PATIENT
  Age: 68 Year
  Sex: Female

DRUGS (6)
  1. XANAX [Concomitant]
  2. DYAZIDE [Concomitant]
  3. RECLAST [Suspect]
     Indication: OSTEOPOROSIS
     Dosage: 5 MG., INTRAVENOUS
     Route: 042
     Dates: start: 20110330
  4. ASPIRIN [Concomitant]
  5. PRILOSEC [Concomitant]
  6. ULTRACET [Concomitant]

REACTIONS (4)
  - VOMITING [None]
  - NAUSEA [None]
  - MALAISE [None]
  - DIARRHOEA [None]
